FAERS Safety Report 9393580 (Version 1)
Quarter: 2013Q3

REPORT INFORMATION
  Report Type: Spontaneous
  Country: CA (occurrence: CA)
  Receive Date: 20130710
  Receipt Date: 20130710
  Transmission Date: 20140515
  Serious: Yes (Other)
  Sender: FDA-Public Use
  Company Number: CA-GLAXOSMITHKLINE-A1022101A

PATIENT
  Sex: Male

DRUGS (10)
  1. VOTRIENT [Suspect]
     Indication: SARCOMA
     Dosage: 800MG PER DAY
     Route: 048
     Dates: start: 20130110, end: 20130412
  2. FUROSEMIDE [Concomitant]
  3. CALCIUM [Concomitant]
  4. METOPROLOL [Concomitant]
  5. HYDRALAZINE [Concomitant]
  6. OXYCODAN [Concomitant]
  7. ARANESP [Concomitant]
  8. DOCUSATE [Concomitant]
  9. TAMSULOSIN [Concomitant]
  10. ISOSORBIDE MONONITRATE [Concomitant]

REACTIONS (1)
  - Malignant neoplasm progression [Not Recovered/Not Resolved]
